FAERS Safety Report 8103604-8 (Version None)
Quarter: 2011Q4

REPORT INFORMATION
  Report Type: 
  Country: None (occurrence: None)
  Receive Date: 20111222
  Receipt Date: 20111101
  Transmission Date: 20120403
  Serious: Yes (Other)
  Sender: FDA-Public Use
  Company Number: UG-IGSA-IG960

PATIENT
  Sex: Female
  Weight: 91.5 kg

DRUGS (7)
  1. SIMVASTATIN [Concomitant]
  2. DOXYCYLINE HYCLATE [Concomitant]
  3. LISINOPRIL [Concomitant]
  4. ZOLPIDEM [Concomitant]
  5. METOCLOPRAMIDE [Concomitant]
  6. FLEBOGAMMA [Suspect]
     Indication: IMMUNODEFICIENCY COMMON VARIABLE
     Dosage: 20 G
     Dates: start: 20110628
  7. CLINDAMYCIN [Concomitant]

REACTIONS (5)
  - DYSPNOEA [None]
  - CHEST PAIN [None]
  - UNEVALUABLE EVENT [None]
  - FLUSHING [None]
  - DYSGEUSIA [None]
